FAERS Safety Report 10026762 (Version 2)
Quarter: 2014Q1

REPORT INFORMATION
  Report Type: Report from Study
  Country: BR (occurrence: BR)
  Receive Date: 20140321
  Receipt Date: 20140321
  Transmission Date: 20141002
  Serious: Yes (Hospitalization, Other)
  Sender: FDA-Public Use
  Company Number: BR-AMGEN-BRACT2011068650

PATIENT
  Age: 49 Year
  Sex: Female
  Weight: 63 kg

DRUGS (7)
  1. ETANERCEPT [Suspect]
     Indication: RHEUMATOID ARTHRITIS
     Dosage: 50 MG, QWK
     Route: 058
     Dates: start: 20110127, end: 2013
  2. CELEBRA [Concomitant]
     Dosage: UNK
  3. PREDSIM [Concomitant]
     Dosage: UNK
  4. METHOTREXATE [Concomitant]
     Dosage: UNK
  5. SEROQUEL [Concomitant]
     Indication: DEPRESSION
     Dosage: UNK
  6. NEURAL                             /01047101/ [Concomitant]
     Indication: DEPRESSION
     Dosage: UNK
  7. PAXTRAT [Concomitant]
     Indication: DEPRESSION
     Dosage: UNK

REACTIONS (4)
  - Product quality issue [Unknown]
  - Infarction [Recovering/Resolving]
  - Injection site reaction [Unknown]
  - Injection site pain [Unknown]
